FAERS Safety Report 8293847-5 (Version None)
Quarter: 2012Q2

REPORT INFORMATION
  Report Type: 
  Country: None (occurrence: None)
  Receive Date: 20120418
  Receipt Date: 20120416
  Transmission Date: 20120825
  Serious: No
  Sender: FDA-Public Use
  Company Number: US-PFIZER INC-2012095192

PATIENT
  Sex: Female
  Weight: 77.098 kg

DRUGS (13)
  1. PRILOSEC [Concomitant]
     Indication: DYSPEPSIA
     Dosage: UNK, DAILY
  2. VENTOLIN [Concomitant]
     Indication: CHRONIC OBSTRUCTIVE PULMONARY DISEASE
     Dosage: UNK, AS NEEDED
  3. LORAZEPAM [Concomitant]
     Indication: ANXIETY
     Dosage: 1 MG, 3X/DAY
  4. ZANTAC [Concomitant]
     Indication: PANCREATIC DISORDER
     Dosage: UNK
  5. MULTI-VITAMINS [Concomitant]
     Dosage: UNK
  6. ACYCLOVIR [Concomitant]
     Indication: HERPES ZOSTER
     Dosage: UNK
  7. CHANTIX [Suspect]
     Dosage: UNK
     Route: 048
  8. ZOLOFT [Concomitant]
     Indication: DEPRESSION
     Dosage: 50 MG, DAILY
  9. SEROQUEL [Concomitant]
     Indication: AFFECTIVE DISORDER
     Dosage: 300 MG, DAILY
  10. ACETYLSALICYLIC ACID [Concomitant]
     Indication: CARDIAC DISORDER
     Dosage: UNK
  11. CHANTIX [Suspect]
     Indication: SMOKING CESSATION THERAPY
     Dosage: 0.5 MG, DAILY
     Route: 048
     Dates: start: 20120409
  12. FUROSEMIDE [Concomitant]
     Indication: FLUID RETENTION
     Dosage: UNK
  13. ADVAIR DISKUS 100/50 [Concomitant]
     Indication: ASTHMA
     Dosage: UNK

REACTIONS (1)
  - EMOTIONAL DISTRESS [None]
